FAERS Safety Report 5206411-9 (Version None)
Quarter: 2006Q4

REPORT INFORMATION
  Report Type: 
  Country: None (occurrence: None)
  Receive Date: 20061026
  Receipt Date: 20060825
  Transmission Date: 20070319
  Serious: Yes (Other)
  Sender: FDA-Public Use
  Company Number: 2006104955

PATIENT
  Age: 74 Year
  Sex: Female

DRUGS (3)
  1. LYRICA [Suspect]
     Indication: DIABETIC NEUROPATHY
     Dosage: (2 IN 1 D)
     Dates: start: 20060801, end: 20060801
  2. ALL OTHER THERAPEUTIC PROCUTS (ALL OTHER THERAPEUTIC PRODUCTS) [Concomitant]
  3. GLEEVEC [Concomitant]

REACTIONS (5)
  - AGGRESSION [None]
  - DYSARTHRIA [None]
  - EUPHORIC MOOD [None]
  - LOGORRHOEA [None]
  - PERSONALITY CHANGE [None]
